FAERS Safety Report 23445956 (Version 1)
Quarter: 2024Q1

REPORT INFORMATION
  Report Type: Spontaneous
  Country: US (occurrence: US)
  Receive Date: 20240126
  Receipt Date: 20240126
  Transmission Date: 20240410
  Serious: No
  Sender: FDA-Public Use
  Company Number: US-BRISTOL-MYERS SQUIBB COMPANY-2024-013650

PATIENT
  Age: 41 Year
  Sex: Female
  Weight: 67.13 kg

DRUGS (2)
  1. ONUREG [Suspect]
     Active Substance: AZACITIDINE
     Indication: Leukaemia
     Route: 048
     Dates: start: 20240101
  2. ONUREG [Suspect]
     Active Substance: AZACITIDINE

REACTIONS (2)
  - Nausea [Unknown]
  - Diarrhoea [Unknown]
